FAERS Safety Report 18155270 (Version 1)
Quarter: 2020Q3

REPORT INFORMATION
  Report Type: Spontaneous
  Country: US (occurrence: US)
  Receive Date: 20200814
  Receipt Date: 20200814
  Transmission Date: 20201103
  Serious: Yes (Other)
  Sender: FDA-Public Use
  Company Number: None

PATIENT
  Age: 54 Year
  Sex: Female
  Weight: 127 kg

DRUGS (3)
  1. HUMIRA [Concomitant]
     Active Substance: ADALIMUMAB
     Dates: start: 20200205
  2. REMDESIVIR. [Suspect]
     Active Substance: REMDESIVIR
     Indication: COVID-19
     Route: 041
  3. METHOTREXATE. [Concomitant]
     Active Substance: METHOTREXATE
     Dates: start: 20190812

REACTIONS (1)
  - Leukopenia [None]

NARRATIVE: CASE EVENT DATE: 20200731
